FAERS Safety Report 7713827-5 (Version None)
Quarter: 2011Q3

REPORT INFORMATION
  Report Type: 
  Country: None (occurrence: None)
  Receive Date: 20110826
  Receipt Date: 20100217
  Transmission Date: 20111222
  Serious: Yes (Hospitalization, Other)
  Sender: FDA-Public Use
  Company Number: US-CELGENEUS-163-21880-10021530

PATIENT
  Age: 65 Year
  Sex: Female

DRUGS (26)
  1. SIMAVASTATIN [Concomitant]
     Route: 065
     Dates: start: 20090707
  2. LORAZEPAM [Concomitant]
     Route: 065
     Dates: start: 20090519
  3. REVLIMID [Suspect]
     Dosage: 25 MILLIGRAM
     Route: 048
     Dates: start: 20090720, end: 20090821
  4. ASPIRIN [Concomitant]
     Route: 065
     Dates: start: 20090701
  5. FOLIC ACID [Concomitant]
     Route: 065
     Dates: start: 20070822
  6. GABAPENTIN [Concomitant]
     Route: 065
     Dates: start: 20090427
  7. LACTOBACILLUS RHAMNOSUS [Concomitant]
     Route: 065
     Dates: start: 20090624
  8. TRIMETHOBENZAMIDE HCL [Concomitant]
     Route: 065
     Dates: start: 20090519
  9. ZOLEDRONIC ACID [Concomitant]
     Route: 065
     Dates: start: 20080613
  10. REVLIMID [Suspect]
     Dosage: 20 MILLIGRAM
     Route: 048
     Dates: start: 20090624, end: 20090702
  11. LOPERAMIDE HCL [Concomitant]
     Route: 065
     Dates: start: 20080221
  12. VITAMINS NOS [Concomitant]
     Route: 065
     Dates: start: 20050301
  13. DEXAMETHASONE [Suspect]
     Indication: MULTIPLE MYELOMA
     Dosage: 40 MILLIGRAM
     Route: 065
     Dates: start: 20090521, end: 20090907
  14. GUAR GUM [Concomitant]
     Route: 065
     Dates: start: 20090701
  15. THIOCTIC ACID [Concomitant]
     Route: 065
     Dates: start: 20070822
  16. VITAMIN B NOS [Concomitant]
     Route: 065
     Dates: start: 20070822
  17. REVLIMID [Suspect]
     Indication: MULTIPLE MYELOMA
     Dosage: 25 MILLIGRAM
     Route: 048
     Dates: start: 20090521, end: 20090610
  18. VORINOSTAT [Suspect]
     Dosage: 300 MILLIGRAM
     Route: 048
     Dates: start: 20090624, end: 20090831
  19. LEVOCARNITINE [Concomitant]
     Route: 065
     Dates: start: 20070822
  20. OMEPRAZOLE [Concomitant]
     Route: 065
     Dates: start: 20090601
  21. ONDANSETRON [Concomitant]
     Route: 065
     Dates: start: 20090519
  22. VORINOSTAT [Suspect]
     Indication: MULTIPLE MYELOMA
     Dosage: 400 MILLIGRAM
     Route: 065
     Dates: start: 20090521, end: 20090611
  23. ACYCLOVIR [Concomitant]
     Route: 065
     Dates: start: 20090624
  24. RED BLOOD CELLS [Concomitant]
     Route: 041
     Dates: start: 20090707
  25. METOPROLOL TARTRATE [Concomitant]
     Route: 065
     Dates: start: 20050302
  26. QUETIAPINE [Concomitant]
     Route: 065
     Dates: start: 20090505

REACTIONS (5)
  - ELECTROCARDIOGRAM QT PROLONGED [None]
  - TROPONIN I INCREASED [None]
  - GASTROENTERITIS [None]
  - DEHYDRATION [None]
  - EXTRASYSTOLES [None]
